FAERS Safety Report 15771773 (Version 1)
Quarter: 2018Q4

REPORT INFORMATION
  Report Type: Spontaneous
  Country: US (occurrence: US)
  Receive Date: 20181228
  Receipt Date: 20181228
  Transmission Date: 20190205
  Serious: No
  Sender: FDA-Public Use
  Company Number: US-SA-2018SA392640

PATIENT
  Age: 65 Year
  Sex: Female

DRUGS (2)
  1. LANTUS SOLOSTAR [Suspect]
     Active Substance: INSULIN GLARGINE
     Dosage: ON THE DAY OF THE INCIDENT SHE TOOK 20 UNITS FROM ONE LSS PEN AND THE REMAINING 16 UNITS OUT OF A NE
     Route: 065
  2. LANTUS SOLOSTAR [Suspect]
     Active Substance: INSULIN GLARGINE
     Indication: TYPE 2 DIABETES MELLITUS
     Dosage: 36 U, QD(ON THE DAY OF THE INCIDENT SHE TOOK 20 UNITS FROM ONE LSS PEN AND THE REMAINING 16 UNITS OU
     Route: 065

REACTIONS (4)
  - Nervousness [Recovered/Resolved]
  - Blood glucose decreased [Recovered/Resolved]
  - Dizziness [Recovered/Resolved]
  - Visual impairment [Recovered/Resolved]
